FAERS Safety Report 6697646-7 (Version None)
Quarter: 2010Q2

REPORT INFORMATION
  Report Type: 
  Country: None (occurrence: None)
  Receive Date: 20100426
  Receipt Date: 20100415
  Transmission Date: 20101027
  Serious: Yes (Other)
  Sender: FDA-Public Use
  Company Number: BR-GENENTECH-300707

PATIENT
  Sex: Female
  Weight: 60 kg

DRUGS (4)
  1. RITUXIMAB [Suspect]
     Indication: RHEUMATOID ARTHRITIS
     Dosage: 1000 MG, Q15D
     Route: 042
     Dates: start: 20080101, end: 20080101
  2. RITUXIMAB [Suspect]
     Dosage: 1000 MG, Q15D
     Route: 042
     Dates: start: 20090807, end: 20090828
  3. CALCIUM [Concomitant]
     Indication: DRUG USE FOR UNKNOWN INDICATION
     Dosage: UNK
  4. CAPTOPRIL [Concomitant]
     Indication: DRUG USE FOR UNKNOWN INDICATION
     Dosage: 5 MG, UNK

REACTIONS (4)
  - BLOOD PRESSURE INCREASED [None]
  - MUSCLE DISORDER [None]
  - PAIN [None]
  - THROMBOCYTOPENIA [None]
